FAERS Safety Report 15798691 (Version 2)
Quarter: 2019Q1

REPORT INFORMATION
  Report Type: Spontaneous
  Country: US (occurrence: US)
  Receive Date: 20190108
  Receipt Date: 20190305
  Transmission Date: 20190417
  Serious: No
  Sender: FDA-Public Use
  Company Number: US-SA-2019SA002278

PATIENT
  Age: 63 Year
  Sex: Female

DRUGS (1)
  1. PRALUENT [Suspect]
     Active Substance: ALIROCUMAB
     Indication: BLOOD CHOLESTEROL
     Dosage: 75 MG, QOW
     Dates: start: 20180312, end: 20180710

REACTIONS (10)
  - Dyspnoea exertional [Recovering/Resolving]
  - Gait disturbance [Recovering/Resolving]
  - Arthralgia [Recovering/Resolving]
  - Confusional state [Recovering/Resolving]
  - Musculoskeletal stiffness [Recovering/Resolving]
  - Balance disorder [Recovering/Resolving]
  - Nodule [Recovered/Resolved]
  - Joint stiffness [Not Recovered/Not Resolved]
  - Pain in extremity [Recovered/Resolved]
  - Pain in extremity [Recovering/Resolving]
